FAERS Safety Report 20013428 (Version 1)
Quarter: 2021Q4

REPORT INFORMATION
  Report Type: Spontaneous
  Country: DE (occurrence: DE)
  Receive Date: 20211029
  Receipt Date: 20211029
  Transmission Date: 20220303
  Serious: Yes (Other)
  Sender: FDA-Public Use
  Company Number: None

PATIENT
  Sex: Male

DRUGS (14)
  1. DOXORUBICIN [Suspect]
     Active Substance: DOXORUBICIN
     Indication: Neuroblastoma
     Dosage: UNK
     Dates: start: 20200601, end: 2020
  2. DOXORUBICIN [Suspect]
     Active Substance: DOXORUBICIN
     Dosage: UNK
     Dates: start: 20200721, end: 2020
  3. ETOPOSIDE [Suspect]
     Active Substance: ETOPOSIDE
     Indication: Neuroblastoma
     Dosage: UNK
     Dates: start: 20200626, end: 2020
  4. ETOPOSIDE [Suspect]
     Active Substance: ETOPOSIDE
     Dosage: UNK
     Dates: start: 20200815, end: 2020
  5. CISPLATIN [Suspect]
     Active Substance: CISPLATIN
     Indication: Neuroblastoma
     Dosage: UNK
     Dates: start: 20200815, end: 2020
  6. CARBOPLATIN [Suspect]
     Active Substance: CARBOPLATIN
     Indication: Neuroblastoma
     Dosage: UNK
     Dates: start: 20200626, end: 2020
  7. VINDESINE [Suspect]
     Active Substance: VINDESINE
     Indication: Neuroblastoma
     Dosage: UNK
     Dates: start: 20200626, end: 2020
  8. VINDESINE [Suspect]
     Active Substance: VINDESINE
     Dosage: UNK
     Dates: start: 20200815, end: 2020
  9. DACARBAZINE [Suspect]
     Active Substance: DACARBAZINE
     Indication: Neuroblastoma
     Dosage: UNK
     Dates: start: 20200721, end: 2020
  10. CYCLOPHOSPHAMIDE [Suspect]
     Active Substance: CYCLOPHOSPHAMIDE
     Indication: Neuroblastoma
     Dosage: UNK
     Dates: start: 20200601, end: 2020
  11. VINCRISTINE [Suspect]
     Active Substance: VINCRISTINE
     Indication: Neuroblastoma
     Dosage: UNK
     Dates: start: 20200601, end: 2020
  12. VINCRISTINE [Suspect]
     Active Substance: VINCRISTINE
     Dosage: UNK
     Dates: start: 20200721, end: 2020
  13. MESNA [Suspect]
     Active Substance: MESNA
     Indication: Neuroblastoma
     Dosage: UNK
     Dates: start: 20200601, end: 2020
  14. IFOSFAMIDE [Suspect]
     Active Substance: IFOSFAMIDE
     Indication: Neuroblastoma
     Dosage: UNK
     Dates: start: 20200721, end: 2020

REACTIONS (7)
  - Malignant neoplasm progression [Unknown]
  - Pneumonia klebsiella [Unknown]
  - Blindness [Unknown]
  - Neuroblastoma recurrent [Unknown]
  - Device delivery system issue [Unknown]
  - Resorption bone increased [Unknown]
  - Product use in unapproved indication [Unknown]

NARRATIVE: CASE EVENT DATE: 20200101
